FAERS Safety Report 7778979-X (Version None)
Quarter: 2011Q3

REPORT INFORMATION
  Report Type: 
  Country: None (occurrence: None)
  Receive Date: 20110926
  Receipt Date: 20110920
  Transmission Date: 20111222
  Serious: Yes (Death, Hospitalization, Other)
  Sender: FDA-Public Use
  Company Number: AU-PFIZER INC-2011195373

PATIENT
  Age: 80 Year
  Sex: Female
  Weight: 68 kg

DRUGS (15)
  1. DIGOXIN [Concomitant]
     Indication: ATRIAL FIBRILLATION
     Dosage: 62.5 UG, 1X/DAY
     Dates: end: 20110821
  2. PRAMIPEXOLE [Concomitant]
     Dosage: 1.5 MG, 1X/DAY
     Dates: start: 20110113
  3. PANTOPRAZOLE [Concomitant]
     Dosage: 40 MG, 1X/DAY
     Dates: start: 20110712
  4. ALDACTONE [Concomitant]
     Indication: OEDEMA
  5. COLECALCIFEROL [Concomitant]
     Dosage: 1 DF, 3X/DAY
  6. REVATIO [Suspect]
     Indication: PULMONARY ARTERIAL HYPERTENSION
     Dosage: 20 MG, 3X/DAY
     Route: 048
     Dates: start: 20101101, end: 20110821
  7. AMBRISENTAN [Suspect]
     Indication: PULMONARY ARTERIAL HYPERTENSION
     Dosage: 5 MG, 1X/DAY
     Route: 048
     Dates: start: 20101220, end: 20110821
  8. ATENOLOL [Concomitant]
     Indication: HYPERTENSION
     Dosage: 50 MG, 1X/DAY
     Route: 048
     Dates: end: 20110821
  9. LASIX [Concomitant]
     Indication: POLYURIA
     Dosage: 40 MG, 2X/DAY
     Route: 048
     Dates: end: 20110821
  10. LIPITOR [Concomitant]
     Indication: HYPERLIPIDAEMIA
     Dosage: 20 MG, 1X/DAY
     Route: 048
     Dates: end: 20110821
  11. ACETYLSALICYLIC ACID [Concomitant]
     Indication: ATRIAL FIBRILLATION
     Dosage: 100 MG, 1X/DAY
     Route: 048
     Dates: end: 20110821
  12. METFORMIN [Concomitant]
     Indication: TYPE 2 DIABETES MELLITUS
     Dosage: UNK
     Dates: end: 20110821
  13. THELIN [Suspect]
     Indication: PULMONARY ARTERIAL HYPERTENSION
     Dosage: 100 MG, 1X/DAY
     Route: 048
     Dates: start: 20081101, end: 20101215
  14. ALDACTONE [Concomitant]
     Indication: HYPERTENSION
     Dosage: UNK MG, 1X/DAY
     Dates: end: 20110821
  15. DESVENLAFAXINE [Concomitant]
     Dosage: 50 MG, 1X/DAY

REACTIONS (4)
  - PANCREATITIS [None]
  - CARDIAC FAILURE [None]
  - ANAEMIA [None]
  - RENAL FAILURE ACUTE [None]
